FAERS Safety Report 6410967-8 (Version None)
Quarter: 2009Q4

REPORT INFORMATION
  Report Type: 
  Country: None (occurrence: None)
  Receive Date: 20091020
  Receipt Date: 20091020
  Transmission Date: 20100525
  Serious: Yes (Other)
  Sender: FDA-Public Use
  Company Number: None

PATIENT
  Sex: Female
  Weight: 137.8935 kg

DRUGS (2)
  1. LEVAQUIN [Suspect]
     Indication: MASTITIS
     Dosage: 250MG - 500 MG 2 X DAY BY MOUTH
     Route: 048
     Dates: start: 19980501
  2. CIPRO [Suspect]
     Indication: BRONCHITIS
     Dosage: 250MG OR - 500 MG 2X DAY BY MOUTH
     Route: 048
     Dates: start: 20090401

REACTIONS (3)
  - MUSCULOSKELETAL PAIN [None]
  - TENDON RUPTURE [None]
  - TENDONITIS [None]
